FAERS Safety Report 5358704-2 (Version None)
Quarter: 2007Q2

REPORT INFORMATION
  Report Type: 
  Country: None (occurrence: None)
  Receive Date: 20070615
  Receipt Date: 20070605
  Transmission Date: 20071010
  Serious: Yes (Hospitalization)
  Sender: FDA-Public Use
  Company Number: IT-AMGEN-UK225108

PATIENT
  Sex: Male

DRUGS (9)
  1. PANITUMUMAB [Suspect]
     Indication: COLORECTAL CANCER
     Route: 042
     Dates: start: 20070322, end: 20070606
  2. OXALIPLATIN [Concomitant]
  3. FLUOROURACIL [Concomitant]
  4. LEUCOVORIN CALCIUM [Concomitant]
  5. DEXAMETHASONE 0.5MG TAB [Concomitant]
     Route: 042
     Dates: start: 20070322
  6. RANITIDINE [Concomitant]
     Route: 042
     Dates: start: 20070322
  7. GRANISETRON [Concomitant]
     Route: 042
     Dates: start: 20070322
  8. ASPIRIN [Concomitant]
     Route: 048
     Dates: start: 20040101
  9. MOST CREMA 2S [Concomitant]
     Route: 061
     Dates: start: 20070325

REACTIONS (2)
  - PULMONARY EMBOLISM [None]
  - PULMONARY INFARCTION [None]
